FAERS Safety Report 10652824 (Version 2)
Quarter: 2015Q1

REPORT INFORMATION
  Report Type: Spontaneous
  Country: CA (occurrence: CA)
  Receive Date: 20141215
  Receipt Date: 20150129
  Transmission Date: 20150720
  Serious: Yes (Other)
  Sender: FDA-Public Use
  Company Number: CA-ELI_LILLY_AND_COMPANY-CA201412000998

PATIENT
  Sex: Female
  Weight: 50 kg

DRUGS (1)
  1. CYMBALTA [Suspect]
     Active Substance: DULOXETINE HYDROCHLORIDE
     Indication: PAIN
     Dosage: 60 MG, QD
     Route: 065
     Dates: start: 2013

REACTIONS (4)
  - Postural orthostatic tachycardia syndrome [Unknown]
  - Raynaud^s phenomenon [Unknown]
  - Autonomic nervous system imbalance [Unknown]
  - Off label use [Unknown]
